FAERS Safety Report 5765373-6 (Version None)
Quarter: 2008Q2

REPORT INFORMATION
  Report Type: 
  Country: None (occurrence: None)
  Receive Date: 20080605
  Receipt Date: 20080515
  Transmission Date: 20081010
  Serious: Yes (Hospitalization)
  Sender: FDA-Public Use
  Company Number: E2090-00476-SOL-CH

PATIENT
  Age: 36 Year
  Sex: Male
  Weight: 85 kg

DRUGS (10)
  1. ZONEGRAN [Suspect]
     Indication: EPILEPSY
     Dosage: SEE IMAGE
     Route: 048
     Dates: start: 20071210, end: 20071210
  2. ZONEGRAN [Suspect]
     Indication: EPILEPSY
     Dosage: SEE IMAGE
     Route: 048
     Dates: start: 20071211, end: 20071211
  3. ZONEGRAN [Suspect]
     Indication: EPILEPSY
     Dosage: SEE IMAGE
     Route: 048
     Dates: start: 20071212, end: 20071212
  4. ZONEGRAN [Suspect]
     Indication: EPILEPSY
     Dosage: SEE IMAGE
     Route: 048
     Dates: start: 20071213, end: 20071213
  5. ZONEGRAN [Suspect]
     Indication: EPILEPSY
     Dosage: SEE IMAGE
     Route: 048
     Dates: start: 20071214, end: 20071214
  6. ZONEGRAN [Suspect]
     Indication: EPILEPSY
     Dosage: SEE IMAGE
     Route: 048
     Dates: start: 20071215, end: 20071215
  7. LAMOTRIGINE [Concomitant]
  8. TOPIRAMATE [Concomitant]
  9. CLONAZEPAM [Concomitant]
  10. LORAZEPAM [Concomitant]

REACTIONS (1)
  - DRUG ERUPTION [None]
